FAERS Safety Report 16279687 (Version 1)
Quarter: 2019Q2

REPORT INFORMATION
  Report Type: Spontaneous
  Country: US (occurrence: US)
  Receive Date: 20190507
  Receipt Date: 20190507
  Transmission Date: 20190711
  Serious: Yes (Other)
  Sender: FDA-Public Use
  Company Number: US-ROCHE-2313150

PATIENT
  Sex: Male
  Weight: 83.99 kg

DRUGS (4)
  1. ALECENSA [Suspect]
     Active Substance: ALECTINIB HYDROCHLORIDE
     Indication: BRONCHIAL CARCINOMA
     Dosage: ONGOING: YES, 4 CAPSULES TWICE A DAY
     Route: 048
     Dates: start: 20170901
  2. COLACE [Concomitant]
     Active Substance: DOCUSATE SODIUM
     Route: 048
     Dates: start: 20170830
  3. PEPCID [Concomitant]
     Active Substance: FAMOTIDINE
     Dosage: ONGOING: UNKNOWN
     Route: 048
     Dates: start: 20170830
  4. LIPITOR [Concomitant]
     Active Substance: ATORVASTATIN CALCIUM
     Route: 048
     Dates: start: 20170830

REACTIONS (1)
  - Facial paralysis [Unknown]
